FAERS Safety Report 21036263 (Version 1)
Quarter: 2022Q3

REPORT INFORMATION
  Report Type: Spontaneous
  Country: US (occurrence: US)
  Receive Date: 20220701
  Receipt Date: 20220701
  Transmission Date: 20221027
  Serious: No
  Sender: FDA-Public Use
  Company Number: US-009507513-2206USA005167

PATIENT
  Sex: Male

DRUGS (2)
  1. BELSOMRA [Suspect]
     Active Substance: SUVOREXANT
     Indication: Sleep disorder
     Dosage: 15 MILLIGRAM, QD
     Route: 048
     Dates: start: 2016, end: 20220602
  2. ZETIA [Concomitant]
     Active Substance: EZETIMIBE

REACTIONS (1)
  - Drug ineffective [Recovering/Resolving]
